FAERS Safety Report 5592602-4 (Version None)
Quarter: 2007Q4

REPORT INFORMATION
  Report Type: 
  Country: None (occurrence: None)
  Receive Date: 20071218
  Receipt Date: 20070525
  Transmission Date: 20080405
  Serious: Yes (Hospitalization)
  Sender: FDA-Public Use
  Company Number: 2005044164

PATIENT
  Sex: Male

DRUGS (3)
  1. BEXTRA [Suspect]
     Indication: ARTHRITIS
  2. ANTIHYPERTENSIVES (ANTIHYPERTENSIVES) [Suspect]
     Indication: HYPERTENSION
  3. ALL OTHER THERAPEUTIC PRODUCTS (ALL OTHER THERAPEUTIC PRODUCTS) [Suspect]
     Indication: ATRIAL FIBRILLATION

REACTIONS (2)
  - HYPERTENSION [None]
  - TRANSIENT ISCHAEMIC ATTACK [None]
